FAERS Safety Report 17009299 (Version 1)
Quarter: 2019Q4

REPORT INFORMATION
  Report Type: Spontaneous
  Country: US (occurrence: US)
  Receive Date: 20191108
  Receipt Date: 20191108
  Transmission Date: 20200122
  Serious: No
  Sender: FDA-Public Use
  Company Number: US-HIKMA PHARMACEUTICALS USA INC.-US-H14001-19-01650

PATIENT
  Sex: Male

DRUGS (2)
  1. CYANOCOBALAMIN. [Suspect]
     Active Substance: CYANOCOBALAMIN
     Route: 065
     Dates: start: 20190311
  2. CYANOCOBALAMIN. [Suspect]
     Active Substance: CYANOCOBALAMIN
     Indication: MYALGIA
     Route: 065
     Dates: start: 201901

REACTIONS (2)
  - Accidental underdose [Not Recovered/Not Resolved]
  - Off label use [Not Recovered/Not Resolved]
